FAERS Safety Report 9515686 (Version 1)
Quarter: 2013Q1

REPORT INFORMATION
  Report Type: Spontaneous
  Country: US (occurrence: None)
  Receive Date: 20130305
  Receipt Date: 20130305
  Transmission Date: 20140127
  Serious: Yes (Disabling)
  Sender: FDA-Public Use
  Company Number: 163-21880-12103635

PATIENT
  Age: 74 Year
  Sex: Male
  Weight: 79.4 kg

DRUGS (7)
  1. KYPROLIS (CARFILZOMIB) [Concomitant]
  2. ZOMETA (ZOLEDRONIC ACID) [Concomitant]
  3. VELCADE (BORTEZOMIB) [Concomitant]
  4. DEXAMETHASONE (DEXAMETHASONE) [Concomitant]
  5. LYRICA (PREGABALIN) [Concomitant]
  6. METOPROLOL (METOPROLOL) [Concomitant]
  7. REVLIMID (LENALIDOMIDE) (CAPSULES) [Suspect]
     Indication: PLASMA CELL MYELOMA
     Dosage: 21 IN 28 D
     Route: 048
     Dates: start: 20121009, end: 20121010

REACTIONS (2)
  - Rash generalised [None]
  - Rash pruritic [None]
